FAERS Safety Report 4575933-6 (Version None)
Quarter: 2005Q1

REPORT INFORMATION
  Report Type: 
  Country: None (occurrence: None)
  Receive Date: 20050204
  Receipt Date: 20050121
  Transmission Date: 20050727
  Serious: Yes (Hospitalization)
  Sender: FDA-Public Use
  Company Number: 2005018699

PATIENT
  Age: 66 Year
  Sex: Male
  Weight: 85 kg

DRUGS (3)
  1. IRINOTECAN HCL [Suspect]
     Indication: COLORECTAL CANCER
     Dosage: 240 MG/M2 (CYCLICAL), INTRAVENOUS
     Route: 042
     Dates: start: 20040915
  2. CAPECITABINE (CAPECITABINE) [Suspect]
     Indication: COLORECTAL CANCER
     Dosage: 200 MG/M2 (CYCLICAL), ORAL
     Route: 048
     Dates: start: 20040916
  3. EPROSARTAN MESILATE (EPROSARTAN MESILATE) [Concomitant]

REACTIONS (4)
  - COGNITIVE DETERIORATION [None]
  - CONSTIPATION [None]
  - HYPERTENSION [None]
  - PARAPARESIS [None]
